FAERS Safety Report 16321772 (Version 1)
Quarter: 2019Q2

REPORT INFORMATION
  Report Type: Spontaneous
  Country: JP (occurrence: JP)
  Receive Date: 20190516
  Receipt Date: 20190516
  Transmission Date: 20190711
  Serious: Yes (Death)
  Sender: FDA-Public Use
  Company Number: JP-ALLERGAN-1919883US

PATIENT
  Sex: Male

DRUGS (2)
  1. MEMANTINE HCL - BP [Suspect]
     Active Substance: MEMANTINE
     Indication: PRODUCT USED FOR UNKNOWN INDICATION
     Dosage: UNK
     Route: 048
     Dates: start: 2017
  2. MEMARY [Suspect]
     Active Substance: MEMANTINE HYDROCHLORIDE
     Indication: PRODUCT USED FOR UNKNOWN INDICATION
     Dosage: UNK
     Dates: start: 2017

REACTIONS (3)
  - Death [Fatal]
  - Fall [Unknown]
  - Dizziness [Unknown]
